FAERS Safety Report 18677980 (Version 1)
Quarter: 2020Q4

REPORT INFORMATION
  Report Type: Spontaneous
  Country: JP (occurrence: JP)
  Receive Date: 20201229
  Receipt Date: 20201229
  Transmission Date: 20210114
  Serious: Yes (Hospitalization, Other)
  Sender: FDA-Public Use
  Company Number: JP-PFIZER INC-2020475138

PATIENT
  Age: 45 Year
  Sex: Female
  Weight: 62.4 kg

DRUGS (3)
  1. XELJANZ [Suspect]
     Active Substance: TOFACITINIB CITRATE
     Indication: COLITIS ULCERATIVE
     Dosage: 10 MG, 2X/DAY
     Route: 048
     Dates: start: 20200311, end: 2020
  2. XELJANZ [Suspect]
     Active Substance: TOFACITINIB CITRATE
     Dosage: 5 MG, DAILY
     Route: 048
     Dates: start: 202006, end: 2020
  3. XELJANZ [Suspect]
     Active Substance: TOFACITINIB CITRATE
     Dosage: 10 MG, DAILY
     Route: 048
     Dates: start: 20201128

REACTIONS (13)
  - Gamma-glutamyltransferase increased [Unknown]
  - Lymphocyte percentage decreased [Recovering/Resolving]
  - Neutrophil percentage increased [Recovering/Resolving]
  - Therapy cessation [Unknown]
  - Blood potassium decreased [Recovered/Resolved]
  - Platelet count increased [Unknown]
  - White blood cell count increased [Recovered/Resolved]
  - Colitis ulcerative [Recovered/Resolved]
  - Blood albumin decreased [Recovered/Resolved]
  - Eosinophil percentage decreased [Recovering/Resolving]
  - Blood pressure decreased [Unknown]
  - Blood alkaline phosphatase decreased [Unknown]
  - Protein total decreased [Unknown]

NARRATIVE: CASE EVENT DATE: 202011
